FAERS Safety Report 10619811 (Version 1)
Quarter: 2014Q4

REPORT INFORMATION
  Report Type: Spontaneous
  Country: US (occurrence: None)
  Receive Date: 20141201
  Receipt Date: 20141201
  Transmission Date: 20150529
  Serious: Yes (Other)
  Sender: FDA-Public Use
  Company Number: None

PATIENT
  Age: 43 Year
  Sex: Female
  Weight: 83.92 kg

DRUGS (2)
  1. SINUS CONGESTION AND PAIN DAYTIME [Suspect]
     Active Substance: ACETAMINOPHEN\PHENYLEPHRINE HYDROCHLORIDE
     Indication: PAIN
     Dosage: 2 GEL CAPS
     Route: 048
     Dates: start: 20141126, end: 20141126
  2. SINUS CONGESTION AND PAIN DAYTIME [Suspect]
     Active Substance: ACETAMINOPHEN\PHENYLEPHRINE HYDROCHLORIDE
     Indication: SINUS CONGESTION
     Dosage: 2 GEL CAPS
     Route: 048
     Dates: start: 20141126, end: 20141126

REACTIONS (6)
  - Dry mouth [None]
  - Nervousness [None]
  - Suicidal ideation [None]
  - Dizziness [None]
  - Disturbance in attention [None]
  - Anxiety [None]

NARRATIVE: CASE EVENT DATE: 20141126
